FAERS Safety Report 13229453 (Version 1)
Quarter: 2017Q1

REPORT INFORMATION
  Report Type: Spontaneous
  Country: US (occurrence: US)
  Receive Date: 20170214
  Receipt Date: 20170214
  Transmission Date: 20170428
  Serious: Yes (Hospitalization, Other)
  Sender: FDA-Public Use
  Company Number: US-ACCORD-048174

PATIENT
  Age: 29 Year
  Sex: Female

DRUGS (3)
  1. CISPLATIN. [Suspect]
     Active Substance: CISPLATIN
     Indication: RENAL CANCER METASTATIC
     Dosage: 3 CYCLICAL OVER 21-DAY INTERVALS
  2. GEMCITABINE/GEMCITABINE HYDROCHLORIDE [Suspect]
     Active Substance: GEMCITABINE\GEMCITABINE HYDROCHLORIDE
     Indication: RENAL CANCER METASTATIC
     Dosage: 3 CYCLICAL OVER 21-DAY INTERVALS
  3. PACLITAXEL/PACLITAXEL LIPOSOME [Suspect]
     Active Substance: PACLITAXEL
     Indication: RENAL CANCER METASTATIC
     Dosage: 3 CYCLICAL OVER 21-DAY INTERVALS

REACTIONS (3)
  - Off label use [Unknown]
  - Sepsis [Unknown]
  - Cytopenia [Unknown]
